FAERS Safety Report 13127623 (Version 1)
Quarter: 2017Q1

REPORT INFORMATION
  Report Type: Spontaneous
  Country: US (occurrence: US)
  Receive Date: 20170118
  Receipt Date: 20170118
  Transmission Date: 20170428
  Serious: No
  Sender: FDA-Public Use
  Company Number: US-NOVOPROD-520128

PATIENT
  Age: 52 Year
  Sex: Male

DRUGS (1)
  1. TRESIBA FLEXTOUCH U200 [Suspect]
     Active Substance: INSULIN DEGLUDEC
     Indication: TYPE 2 DIABETES MELLITUS
     Dosage: 110 U, QD (AT 10 PM)
     Route: 058

REACTIONS (3)
  - Rash [Not Recovered/Not Resolved]
  - Nervousness [Recovered/Resolved]
  - Blood glucose increased [Recovered/Resolved]
